FAERS Safety Report 9787553 (Version 2)
Quarter: 2014Q2

REPORT INFORMATION
  Report Type: Spontaneous
  Country: US (occurrence: None)
  Receive Date: 20131224
  Receipt Date: 20140404
  Transmission Date: 20141212
  Serious: Yes (Other)
  Sender: FDA-Public Use
  Company Number: 2013-US-004475

PATIENT
  Age: 45 Year
  Sex: Male
  Weight: 84.4 kg

DRUGS (16)
  1. XYREM [Suspect]
     Indication: NARCOLEPSY
     Route: 048
     Dates: start: 200805, end: 2008
  2. FUZEION (ENFUVIRTIDE) [Concomitant]
  3. NORVIR (RITONAVIR) [Concomitant]
  4. EMTRIVA (EMTRICITABINE) [Concomitant]
  5. DARUNAVIR (PREZISTA) [Concomitant]
  6. TESTIM (TESTOSTERONE) [Concomitant]
  7. RITALIN [Concomitant]
  8. VENLAFAXINE (VENLAFAXINE HYDROCHLORIDE) (UNKNOWN) (VENLAFAXINE HYDROCHLORIDE) [Concomitant]
  9. LORAZEPAM [Concomitant]
  10. FENOFIBRATE [Concomitant]
  11. QUINAPRIL (QUINAPRIL HYDROCHLORIDE) [Concomitant]
  12. DICYCLOMINE (DICYCLOVERINE HYDROCHLORIDE) [Concomitant]
  13. CIALIS (TADALAFIL) [Concomitant]
  14. VENTOLIN (SALBUTAMOL SULFATE) [Concomitant]
  15. MVI (VITAMINS NOS) [Concomitant]
  16. VITAMIN D (ERGOCALCIFEROL) [Concomitant]

REACTIONS (5)
  - Myoclonic epilepsy [None]
  - Fatigue [None]
  - Insomnia [None]
  - Weight decreased [None]
  - Irritability [None]
